FAERS Safety Report 10408737 (Version 1)
Quarter: 2014Q3

REPORT INFORMATION
  Report Type: Spontaneous
  Country: FI (occurrence: FI)
  Receive Date: 20140826
  Receipt Date: 20140826
  Transmission Date: 20150326
  Serious: No
  Sender: FDA-Public Use
  Company Number: FI-JNJFOC-20140811321

PATIENT
  Sex: Female

DRUGS (3)
  1. KLEXANE [Concomitant]
     Active Substance: ENOXAPARIN
     Route: 065
  2. DUROGESIC [Suspect]
     Active Substance: FENTANYL
     Indication: CANCER PAIN
     Route: 062
  3. DUROGESIC [Suspect]
     Active Substance: FENTANYL
     Indication: CANCER PAIN
     Route: 062

REACTIONS (3)
  - Product quality issue [Unknown]
  - Malaise [Unknown]
  - Wrong technique in drug usage process [Unknown]
